FAERS Safety Report 5200296-2 (Version None)
Quarter: 2007Q1

REPORT INFORMATION
  Report Type: 
  Country: None (occurrence: None)
  Receive Date: 20070105
  Receipt Date: 20061227
  Transmission Date: 20070707
  Serious: Yes (Hospitalization, Disabling, Other)
  Sender: FDA-Public Use
  Company Number: FR-PFIZER INC-2006144515

PATIENT
  Sex: Female

DRUGS (2)
  1. LYRICA [Suspect]
     Indication: SENSORY LOSS
  2. LYRICA [Suspect]
     Indication: PARAESTHESIA

REACTIONS (4)
  - GAIT DISTURBANCE [None]
  - MONOPLEGIA [None]
  - MULTIPLE SCLEROSIS [None]
  - PARAESTHESIA [None]
